FAERS Safety Report 21065279 (Version 1)
Quarter: 2022Q3

REPORT INFORMATION
  Report Type: Spontaneous
  Country: US (occurrence: None)
  Receive Date: 20220711
  Receipt Date: 20220711
  Transmission Date: 20221027
  Serious: No
  Sender: FDA-Public Use
  Company Number: None

PATIENT
  Sex: Male
  Weight: 61.23 kg

DRUGS (11)
  1. TEMOZOLOMIDE [Suspect]
     Active Substance: TEMOZOLOMIDE
     Indication: Neoplasm malignant
     Dosage: FREQUENCY : TWICE A DAY;?
     Route: 048
  2. CAPECITABINE [Suspect]
     Active Substance: CAPECITABINE
     Indication: Neoplasm malignant
     Dosage: OTHER FREQUENCY : AM/PM;?
     Route: 048
  3. ASPIRIN [Concomitant]
  4. GABAPENTIN [Concomitant]
  5. LEVETIRACETAM [Concomitant]
     Active Substance: LEVETIRACETAM
  6. MS CONTIN [Concomitant]
  7. PROAIR HFA [Concomitant]
  8. PROCHLORPERAZINE [Concomitant]
  9. PROPRANOLOL [Concomitant]
     Active Substance: PROPRANOLOL HYDROCHLORIDE
  10. SOMATULINE DEPOT [Concomitant]
  11. TUMERIC [Concomitant]

REACTIONS (3)
  - Headache [None]
  - Nausea [None]
  - Vomiting [None]
